FAERS Safety Report 10776703 (Version 9)
Quarter: 2015Q3

REPORT INFORMATION
  Report Type: Spontaneous
  Country: US (occurrence: US)
  Receive Date: 20150209
  Receipt Date: 20150720
  Transmission Date: 20151125
  Serious: Yes (Hospitalization, Other)
  Sender: FDA-Public Use
  Company Number: US-GLAXOSMITHKLINE-A1086536A

PATIENT

DRUGS (13)
  1. FUROSEMIDE. [Concomitant]
     Active Substance: FUROSEMIDE
  2. VITAMIN D [Concomitant]
     Active Substance: CHOLECALCIFEROL
  3. POTASSIUM CHLORIDE. [Concomitant]
     Active Substance: POTASSIUM CHLORIDE
  4. TYLENOL [Concomitant]
     Active Substance: ACETAMINOPHEN
  5. AZATHIOPRINE. [Concomitant]
     Active Substance: AZATHIOPRINE
  6. BENLYSTA [Suspect]
     Active Substance: BELIMUMAB
     Indication: SYSTEMIC LUPUS ERYTHEMATOSUS
     Dosage: 400 ML, VARIABLE DOSING
     Route: 042
     Dates: start: 20140101
  7. BYSTOLIC [Concomitant]
     Active Substance: NEBIVOLOL HYDROCHLORIDE
  8. HYDROXYCHLOROQUINE [Concomitant]
     Active Substance: HYDROXYCHLOROQUINE
  9. BENADRYL [Concomitant]
     Active Substance: DIPHENHYDRAMINE HYDROCHLORIDE
  10. SOLU-MEDROL [Concomitant]
     Active Substance: METHYLPREDNISOLONE SODIUM SUCCINATE
  11. FOLIC ACID. [Concomitant]
     Active Substance: FOLIC ACID
  12. PREDNISONE. [Concomitant]
     Active Substance: PREDNISONE
  13. METHOTREXATE [Concomitant]
     Active Substance: METHOTREXATE

REACTIONS (13)
  - Abdominal distension [Not Recovered/Not Resolved]
  - Systemic lupus erythematosus [Unknown]
  - Therapy cessation [Unknown]
  - Decreased appetite [Not Recovered/Not Resolved]
  - Aspartate aminotransferase increased [Unknown]
  - Malaise [Unknown]
  - Abdominal pain upper [Not Recovered/Not Resolved]
  - Liver disorder [Unknown]
  - Facial pain [Unknown]
  - Gastrointestinal disorder [Unknown]
  - Mouth swelling [Not Recovered/Not Resolved]
  - Alanine aminotransferase increased [Unknown]
  - Toothache [Not Recovered/Not Resolved]

NARRATIVE: CASE EVENT DATE: 201402
